FAERS Safety Report 12218418 (Version 1)
Quarter: 2016Q1

REPORT INFORMATION
  Report Type: Report from Study
  Country: BR (occurrence: BR)
  Receive Date: 20160329
  Receipt Date: 20160329
  Transmission Date: 20160526
  Serious: Yes (Hospitalization)
  Sender: FDA-Public Use
  Company Number: PHHY2016BR036066

PATIENT
  Sex: Female
  Weight: 47 kg

DRUGS (1)
  1. EXJADE [Suspect]
     Active Substance: DEFERASIROX
     Indication: SICKLE CELL ANAEMIA
     Dosage: 25 MG/KG, QD (2 DF OF 500 MG AND 1 DF OF 250 MG)
     Route: 048

REACTIONS (5)
  - Pain in extremity [Unknown]
  - Constipation [Not Recovered/Not Resolved]
  - Pneumonia [Unknown]
  - Back pain [Unknown]
  - Chest pain [Unknown]
